FAERS Safety Report 24575036 (Version 1)
Quarter: 2024Q4

REPORT INFORMATION
  Report Type: Other
  Country: US (occurrence: US)
  Receive Date: 20241104
  Receipt Date: 20241104
  Transmission Date: 20250115
  Serious: Yes (Hospitalization, Other)
  Sender: APPCO PHARMA LLC
  Company Number: US-Appco Pharma LLC-2164349

PATIENT
  Age: 76 Year
  Sex: Female

DRUGS (2)
  1. BACLOFEN [Suspect]
     Active Substance: BACLOFEN
     Indication: Product used for unknown indication
  2. TRAMADOL [Suspect]
     Active Substance: TRAMADOL

REACTIONS (4)
  - Overdose [Unknown]
  - Coma [Recovered/Resolved]
  - Status epilepticus [Recovering/Resolving]
  - Pulseless electrical activity [Recovering/Resolving]
